FAERS Safety Report 8062902-7 (Version None)
Quarter: 2012Q1

REPORT INFORMATION
  Report Type: 
  Country: None (occurrence: None)
  Receive Date: 20120123
  Receipt Date: 20120123
  Transmission Date: 20120608
  Serious: No
  Sender: FDA-Public Use
  Company Number: None

PATIENT
  Age: 35 Year
  Sex: Female

DRUGS (1)
  1. SPRIX [Suspect]
     Indication: PROCEDURAL PAIN
     Dosage: 31 MG
     Route: 045
     Dates: start: 20120103, end: 20120103

REACTIONS (4)
  - VOMITING [None]
  - NAUSEA [None]
  - EPISTAXIS [None]
  - NASAL DISCOMFORT [None]
